FAERS Safety Report 9195690 (Version 3)
Quarter: 2013Q4

REPORT INFORMATION
  Report Type: Spontaneous
  Country: US (occurrence: None)
  Receive Date: 20120703
  Receipt Date: 20131226
  Transmission Date: 20140711
  Serious: Yes (Other)
  Sender: FDA-Public Use
  Company Number: PHEH2012US009128

PATIENT
  Age: 53 Year
  Sex: Female

DRUGS (15)
  1. GILENYA [Suspect]
     Indication: MULTIPLE SCLEROSIS
     Route: 048
     Dates: start: 20111107
  2. LYRICA (PREGABALIN) [Concomitant]
  3. DICYCLOMINE (DICYCLOVERINE) [Concomitant]
  4. CENTRUM (MINERALS NOS, VITAMINS NOS) [Concomitant]
  5. AMANTADINE (AMANTADINE) [Concomitant]
  6. AMLODIPINE BESYLATE (AMLODIPINE BESILATE) [Concomitant]
  7. NASONEX (MOMETASONE FUROATE) [Concomitant]
  8. TRAMADOL (TRAMADOL) [Concomitant]
  9. PROMETHAZINE (PROMETHAZINE) [Concomitant]
  10. LISINOPRIL W/HYDROCHLOROTHIAZIDE (HYDROCHLOROTHIAZIDE, LISINOPRIL) [Concomitant]
  11. ASACOL (MESALAZINE) [Concomitant]
  12. BACLOFEN (BACLOFEN) [Concomitant]
  13. ADVAIR DISKUS (FLUTICASONE PROPIONATE, SALMETEROL XINAFOATE) [Concomitant]
  14. OMEPRAZOLE (OMEPRAZOLE) [Concomitant]
  15. VITAMIN B1 (THIAMINE HYDROCHLORIDE) [Concomitant]

REACTIONS (15)
  - Decreased appetite [None]
  - Fatigue [None]
  - Back pain [None]
  - Weight decreased [None]
  - Upper-airway cough syndrome [None]
  - Urine output decreased [None]
  - Local swelling [None]
  - Tenderness [None]
  - Pain [None]
  - Diarrhoea [None]
  - Cough [None]
  - Nausea [None]
  - Vomiting [None]
  - Mucosal discolouration [None]
  - Oropharyngeal pain [None]
